FAERS Safety Report 4907779-0 (Version None)
Quarter: 2006Q1

REPORT INFORMATION
  Report Type: 
  Country: None (occurrence: None)
  Receive Date: 20060208
  Receipt Date: 20060124
  Transmission Date: 20060701
  Serious: Yes (Life-Threatening, Hospitalization, Other)
  Sender: FDA-Public Use
  Company Number: 2006-00050

PATIENT
  Age: 75 Year
  Sex: Female
  Weight: 63.4 kg

DRUGS (6)
  1. VELCADE [Suspect]
     Indication: MULTIPLE MYELOMA
     Dosage: 2.10 MG, 2/WEEK, INTRAVENOUS
     Route: 042
     Dates: start: 20051213, end: 20060106
  2. CLODRONATE DISODIUM (CLODRONATE DISSODIUM) [Concomitant]
  3. ALLOPURINOL [Concomitant]
  4. AMLODIPINE [Concomitant]
  5. LOPERAMIDE HCL [Concomitant]
  6. METRONIDAZOLE [Concomitant]

REACTIONS (15)
  - ANAEMIA [None]
  - ATRIAL FIBRILLATION [None]
  - CARDIAC ENZYMES INCREASED [None]
  - CONDITION AGGRAVATED [None]
  - DIARRHOEA [None]
  - FLUID OVERLOAD [None]
  - HAEMATEMESIS [None]
  - HYPOTHERMIA [None]
  - MELAENA [None]
  - NEUTROPENIA [None]
  - RECTAL HAEMORRHAGE [None]
  - RENAL IMPAIRMENT [None]
  - SEPSIS [None]
  - THROMBOCYTOPENIA [None]
  - WHITE BLOOD CELL COUNT DECREASED [None]
